FAERS Safety Report 5492352-9 (Version None)
Quarter: 2007Q4

REPORT INFORMATION
  Report Type: 
  Country: None (occurrence: None)
  Receive Date: 20071015
  Receipt Date: 20070718
  Transmission Date: 20080405
  Serious: No
  Sender: FDA-Public Use
  Company Number: 2007SP002567

PATIENT
  Age: 89 Year
  Sex: Female
  Weight: 48.5349 kg

DRUGS (7)
  1. LUNESTA [Suspect]
     Indication: INSOMNIA
     Dosage: 2 MG; HS; ORAL
     Route: 048
     Dates: start: 20070713
  2. TOPRAL [Concomitant]
  3. MICARDIS [Concomitant]
  4. CLONIDINE [Concomitant]
  5. DILTIAZEM [Concomitant]
  6. SIMVASTATIN [Concomitant]
  7. ENABLEX [Concomitant]

REACTIONS (2)
  - DRUG INEFFECTIVE [None]
  - INSOMNIA [None]
